FAERS Safety Report 6168009-8 (Version None)
Quarter: 2009Q2

REPORT INFORMATION
  Report Type: 
  Country: None (occurrence: None)
  Receive Date: 20090423
  Receipt Date: 20090423
  Transmission Date: 20091009
  Serious: Yes (Other)
  Sender: FDA-Public Use
  Company Number: None

PATIENT
  Age: 25 Year
  Sex: Female

DRUGS (3)
  1. TRUVADA [Suspect]
     Indication: HIV INFECTION
     Dosage: 300/200MG QD ORAL
     Route: 048
     Dates: start: 20061030, end: 20080214
  2. VIRAMUNE [Suspect]
     Indication: HIV INFECTION
     Dosage: 200 MG BID ORAL
     Route: 048
     Dates: start: 20061030, end: 20080907
  3. COMBIVIR [Suspect]
     Indication: HIV INFECTION
     Dosage: 150/300 MG BID ORAL
     Route: 048
     Dates: start: 20080215, end: 20080907

REACTIONS (4)
  - DRUG DISPENSING ERROR [None]
  - DRUG EXPOSURE DURING PREGNANCY [None]
  - PREGNANCY [None]
  - STILLBIRTH [None]
